FAERS Safety Report 6299892-3 (Version None)
Quarter: 2009Q3

REPORT INFORMATION
  Report Type: 
  Country: None (occurrence: None)
  Receive Date: 20090806
  Receipt Date: 20090727
  Transmission Date: 20100115
  Serious: Yes (Disabling)
  Sender: FDA-Public Use
  Company Number: PHEH2009US07289

PATIENT
  Sex: Female

DRUGS (8)
  1. EXJADE [Suspect]
     Indication: SICKLE CELL ANAEMIA
     Dosage: 1500 MG, QD
     Route: 048
     Dates: start: 20090214, end: 20090319
  2. EXJADE [Suspect]
     Indication: IRON OVERLOAD
  3. FOLIC ACID [Concomitant]
     Dosage: 1 MG, QD
     Route: 048
  4. SYNTHROID [Concomitant]
     Dosage: 0.88 MG, QD
     Route: 048
  5. PROTONIX [Concomitant]
     Dosage: 40 MG, QD
     Route: 048
  6. LISINOPRIL [Concomitant]
     Dosage: 10 MG, QD
     Route: 048
  7. DEPAKOTE [Concomitant]
     Dosage: 500 MG, QHS
     Route: 048
  8. ALLEGRA [Concomitant]
     Dosage: 1 TABLET, DAILY
     Route: 048

REACTIONS (6)
  - BURNING SENSATION [None]
  - DECREASED APPETITE [None]
  - DYSPHAGIA [None]
  - MOUTH ULCERATION [None]
  - TONGUE ULCERATION [None]
  - WEIGHT DECREASED [None]
